FAERS Safety Report 6725173-7 (Version None)
Quarter: 2010Q2

REPORT INFORMATION
  Report Type: 
  Country: None (occurrence: None)
  Receive Date: 20100514
  Receipt Date: 20100505
  Transmission Date: 20101027
  Serious: Yes (Other)
  Sender: FDA-Public Use
  Company Number: CA-JNJFOC-20100502787

PATIENT
  Sex: Female

DRUGS (1)
  1. REMICADE [Suspect]
     Indication: PSORIATIC ARTHROPATHY
     Route: 042

REACTIONS (8)
  - DEPRESSION [None]
  - FAECES DISCOLOURED [None]
  - FATIGUE [None]
  - HAEMOGLOBIN ABNORMAL [None]
  - MALAISE [None]
  - PHOTOSENSITIVITY REACTION [None]
  - RASH [None]
  - WEIGHT INCREASED [None]
